FAERS Safety Report 15228173 (Version 1)
Quarter: 2018Q4

REPORT INFORMATION
  Report Type: Spontaneous
  Country: HR (occurrence: HR)
  Receive Date: 20180801
  Receipt Date: 20180801
  Transmission Date: 20190204
  Serious: Yes (Hospitalization)
  Sender: FDA-Public Use
  Company Number: HR-SA-2018SA165570

PATIENT
  Sex: Male

DRUGS (12)
  1. METHOTREXATE. [Suspect]
     Active Substance: METHOTREXATE
     Dosage: 15 UNK
     Route: 058
  2. INFLIXIMAB [Suspect]
     Active Substance: INFLIXIMAB
     Indication: POLYARTHRITIS
     Dosage: 5 MG/KG, EVERY 8 WEEKS
     Route: 042
  3. DECORTIN [Suspect]
     Active Substance: PREDNISONE
     Dosage: 15 MG, UNK
     Route: 065
  4. CIMZIA [Suspect]
     Active Substance: CERTOLIZUMAB PEGOL
     Indication: POLYARTHRITIS
     Dosage: UNK
     Route: 065
     Dates: start: 201602, end: 201605
  5. LEFLUNOMIDE. [Suspect]
     Active Substance: LEFLUNOMIDE
     Indication: POLYARTHRITIS
     Dosage: 20 MG, QD
     Route: 065
  6. DECORTIN [Suspect]
     Active Substance: PREDNISONE
     Dosage: 30 UNK
  7. DECORTIN [Suspect]
     Active Substance: PREDNISONE
     Dosage: 10 UNK
  8. DECORTIN [Suspect]
     Active Substance: PREDNISONE
     Dosage: 20 MG, QD
  9. EBETREXAT [METHOTREXATE SODIUM] [Suspect]
     Active Substance: METHOTREXATE SODIUM
     Indication: POLYARTHRITIS
     Dosage: 15 MG, UNK
     Route: 058
  10. FOLACIN [FOLIC ACID] [Suspect]
     Active Substance: FOLIC ACID
     Indication: POLYARTHRITIS
     Dosage: 10 MG, QD
     Route: 065
  11. SULPHASALAZINE [Suspect]
     Active Substance: SULFASALAZINE
     Indication: POLYARTHRITIS
     Dosage: 2X2 TBL
     Route: 065
  12. METHOTREXATE. [Suspect]
     Active Substance: METHOTREXATE
     Dosage: 20 MG, QW
     Route: 065

REACTIONS (11)
  - Sacroiliitis [Recovering/Resolving]
  - Pain [Recovered/Resolved]
  - Disease progression [Recovered/Resolved]
  - General physical health deterioration [Unknown]
  - Spondylitis [Recovering/Resolving]
  - Dermatitis psoriasiform [Recovering/Resolving]
  - Joint contracture [Recovering/Resolving]
  - Crying [Unknown]
  - Depression [Recovered/Resolved]
  - Musculoskeletal stiffness [Recovered/Resolved]
  - Inflammatory marker increased [Recovering/Resolving]

NARRATIVE: CASE EVENT DATE: 20170123
